FAERS Safety Report 24653322 (Version 2)
Quarter: 2024Q4

REPORT INFORMATION
  Report Type: Spontaneous
  Country: US (occurrence: US)
  Receive Date: 20241122
  Receipt Date: 20241224
  Transmission Date: 20250114
  Serious: Yes (Other)
  Sender: BRISTOL-MYERS SQUIBB COMPANY
  Company Number: US-BRISTOL-MYERS SQUIBB COMPANY-2024-182362

PATIENT
  Age: 80 Year
  Sex: Female
  Weight: 72.12 kg

DRUGS (3)
  1. ELIQUIS [Suspect]
     Active Substance: APIXABAN
     Indication: Cardiac disorder
  2. ELIQUIS [Suspect]
     Active Substance: APIXABAN
     Route: 048
  3. VYNDAMAX [Suspect]
     Active Substance: TAFAMIDIS
     Indication: Cardiac disorder

REACTIONS (4)
  - Visual impairment [Recovered/Resolved]
  - Cataract [Recovered/Resolved]
  - Occupational exposure to product [Unknown]
  - Fluid retention [Recovered/Resolved]
